FAERS Safety Report 9110398 (Version 1)
Quarter: 2013Q1

REPORT INFORMATION
  Report Type: Spontaneous
  Country: US (occurrence: US)
  Receive Date: 20130219
  Receipt Date: 20130219
  Transmission Date: 20140127
  Serious: No
  Sender: FDA-Public Use
  Company Number: US-BRISTOL-MYERS SQUIBB COMPANY-16582124

PATIENT
  Age: 40 Year
  Sex: Female

DRUGS (1)
  1. ORENCIA [Suspect]
     Dosage: LAST INF ON 08MAY12,NO OF INF:3
     Route: 042

REACTIONS (2)
  - Drug ineffective [Unknown]
  - Arthralgia [Not Recovered/Not Resolved]
